APPROVED DRUG PRODUCT: OLMESARTAN MEDOXOMIL, AMLODIPINE AND HYDROCHLOROTHIAZIDE
Active Ingredient: AMLODIPINE BESYLATE; HYDROCHLOROTHIAZIDE; OLMESARTAN MEDOXOMIL
Strength: EQ 5MG BASE;12.5MG;40MG
Dosage Form/Route: TABLET;ORAL
Application: A202491 | Product #002 | TE Code: AB
Applicant: TEVA PHARMACEUTICALS USA
Approved: Nov 3, 2016 | RLD: No | RS: No | Type: RX